FAERS Safety Report 7271812-4 (Version None)
Quarter: 2011Q1

REPORT INFORMATION
  Report Type: 
  Country: None (occurrence: None)
  Receive Date: 20110203
  Receipt Date: 20110131
  Transmission Date: 20110831
  Serious: Yes (Death, Hospitalization)
  Sender: FDA-Public Use
  Company Number: US-JNJFOC-20110200402

PATIENT
  Sex: Male
  Weight: 81.65 kg

DRUGS (1)
  1. DURAGESIC-50 [Suspect]
     Indication: PAIN
     Route: 062

REACTIONS (6)
  - DEVICE FAILURE [None]
  - ARTHROPATHY [None]
  - FALL [None]
  - HIP FRACTURE [None]
  - DIABETES MELLITUS [None]
  - PERIARTHRITIS [None]
